FAERS Safety Report 20895616 (Version 2)
Quarter: 2022Q2

REPORT INFORMATION
  Report Type: Spontaneous
  Country: US (occurrence: US)
  Receive Date: 20220531
  Receipt Date: 20220606
  Transmission Date: 20220721
  Serious: No
  Sender: FDA-Public Use
  Company Number: US-ORGANON-O2205USA002263

PATIENT
  Sex: Female
  Weight: 99.7 kg

DRUGS (1)
  1. NEXPLANON [Suspect]
     Active Substance: ETONOGESTREL
     Indication: Contraception
     Dosage: 1 IMPLANT FO 68 MG ROD
     Route: 059
     Dates: start: 20190521, end: 20220523

REACTIONS (8)
  - Implant site pruritus [Recovering/Resolving]
  - Heavy menstrual bleeding [Recovering/Resolving]
  - Weight increased [Recovering/Resolving]
  - Implant site fibrosis [Recovering/Resolving]
  - Device breakage [Recovered/Resolved]
  - Device kink [Recovered/Resolved]
  - Complication of device removal [Recovered/Resolved]
  - Incorrect product administration duration [Unknown]

NARRATIVE: CASE EVENT DATE: 20220521
